FAERS Safety Report 17698390 (Version 8)
Quarter: 2022Q2

REPORT INFORMATION
  Report Type: Spontaneous
  Country: US (occurrence: US)
  Receive Date: 20200423
  Receipt Date: 20220418
  Transmission Date: 20220720
  Serious: Yes (Hospitalization)
  Sender: FDA-Public Use
  Company Number: US-PFIZER INC-2020164184

PATIENT
  Age: 46 Year
  Sex: Female

DRUGS (1)
  1. XELJANZ XR [Suspect]
     Active Substance: TOFACITINIB CITRATE
     Indication: Rheumatoid arthritis
     Dosage: 11 MG, 1X/DAY
     Route: 048
     Dates: start: 201905, end: 2022

REACTIONS (5)
  - COVID-19 [Recovered/Resolved]
  - Sensitivity to weather change [Recovered/Resolved]
  - Product dose omission issue [Unknown]
  - Pain in extremity [Unknown]
  - Inflammation [Unknown]

NARRATIVE: CASE EVENT DATE: 20220101
